FAERS Safety Report 7498319-3 (Version None)
Quarter: 2011Q2

REPORT INFORMATION
  Report Type: 
  Country: None (occurrence: None)
  Receive Date: 20110524
  Receipt Date: 20110429
  Transmission Date: 20111010
  Serious: Yes (Hospitalization, Other)
  Sender: FDA-Public Use
  Company Number: US-BAYER-201037765NA

PATIENT
  Age: 20 Year
  Sex: Female
  Weight: 50.794 kg

DRUGS (3)
  1. YASMIN [Suspect]
     Indication: ENDOMETRIOSIS
  2. YASMIN [Suspect]
     Indication: CONTRACEPTION
     Dosage: UNK
     Route: 048
     Dates: start: 20030101, end: 20040301
  3. NEXIUM [Concomitant]
     Dosage: 40 MG, ONCE
     Route: 048

REACTIONS (9)
  - BILIARY DYSKINESIA [None]
  - CHOLECYSTITIS CHRONIC [None]
  - NAUSEA [None]
  - ABDOMINAL PAIN UPPER [None]
  - GASTRITIS [None]
  - ABDOMINAL PAIN [None]
  - LEUKOCYTOSIS [None]
  - VOMITING [None]
  - HEPATOBILIARY SCAN ABNORMAL [None]
